FAERS Safety Report 22635088 (Version 1)
Quarter: 2023Q2

REPORT INFORMATION
  Report Type: Spontaneous
  Country: AU (occurrence: AU)
  Receive Date: 20230623
  Receipt Date: 20230623
  Transmission Date: 20230721
  Serious: Yes (Other)
  Sender: FDA-Public Use
  Company Number: AU-BAYER-2023A083766

PATIENT
  Sex: Female

DRUGS (1)
  1. STIVARGA [Suspect]
     Active Substance: REGORAFENIB
     Indication: Ewing^s sarcoma
     Dosage: 120 MG, QD

REACTIONS (3)
  - Ewing^s sarcoma [None]
  - Palmar-plantar erythrodysaesthesia syndrome [None]
  - Off label use [None]
